FAERS Safety Report 10213328 (Version 3)
Quarter: 2015Q2

REPORT INFORMATION
  Report Type: Spontaneous
  Country: US (occurrence: None)
  Receive Date: 20140529
  Receipt Date: 20150520
  Transmission Date: 20150821
  Serious: Yes (Hospitalization)
  Sender: FDA-Public Use
  Company Number: UNT-2014-000882

PATIENT
  Age: 62 Year
  Sex: Female

DRUGS (14)
  1. LANTUS [Concomitant]
     Active Substance: INSULIN GLARGINE
  2. SPIRONOLACTONE. [Concomitant]
     Active Substance: SPIRONOLACTONE
  3. BYETTA (EXENATIDE) [Concomitant]
  4. REMODULIN [Suspect]
     Active Substance: TREPROSTINIL
     Indication: COR PULMONALE CHRONIC
     Dosage: 0.099 UG/KG, CONTINUING, INTRAVENOUS
     Route: 042
     Dates: start: 20070802
  5. COUMADIN /00014802/ (WARFARIN SODIUM) [Concomitant]
  6. LASIX [Concomitant]
     Active Substance: FUROSEMIDE
  7. POTASSIUM [Concomitant]
     Active Substance: POTASSIUM
  8. LETAIRIS [Concomitant]
     Active Substance: AMBRISENTAN
  9. HUMALOG [Concomitant]
     Active Substance: INSULIN LISPRO
  10. EFFEXOR (VENLAFAXINE HYDROCHLORIDE) [Concomitant]
  11. PROTONIX (PANTOPRAZOLE SODIUM SESQUIHYDRATE) [Concomitant]
  12. PLAQUENIL /00072602/ (HYDROXYCHLOROQUINE PHOSPHATE) [Concomitant]
  13. REMODULIN [Suspect]
     Active Substance: TREPROSTINIL
     Indication: PULMONARY ARTERIAL HYPERTENSION
     Dosage: 0.099 UG/KG, CONTINUING, INTRAVENOUS
     Route: 042
     Dates: start: 20070802
  14. OXYCODONE [Concomitant]
     Active Substance: OXYCODONE

REACTIONS (1)
  - Dyspnoea [None]

NARRATIVE: CASE EVENT DATE: 20140515
